FAERS Safety Report 21341120 (Version 1)
Quarter: 2022Q3

REPORT INFORMATION
  Report Type: Spontaneous
  Country: US (occurrence: US)
  Receive Date: 20220916
  Receipt Date: 20220916
  Transmission Date: 20221026
  Serious: No
  Sender: FDA-Public Use
  Company Number: US-ELI_LILLY_AND_COMPANY-US202209006643

PATIENT
  Age: 69 Year
  Sex: Female

DRUGS (1)
  1. TRULICITY [Suspect]
     Active Substance: DULAGLUTIDE
     Indication: Product used for unknown indication
     Dosage: 0.75 MG, UNKNOWN
     Route: 065
     Dates: start: 202203

REACTIONS (6)
  - Blood pressure increased [Unknown]
  - Visual impairment [Unknown]
  - Dyspnoea [Unknown]
  - Panic reaction [Unknown]
  - Product storage error [Unknown]
  - Asthenia [Unknown]

NARRATIVE: CASE EVENT DATE: 20220913
